FAERS Safety Report 5169871-8 (Version None)
Quarter: 2006Q4

REPORT INFORMATION
  Report Type: 
  Country: None (occurrence: None)
  Receive Date: 20061212
  Receipt Date: 20060315
  Transmission Date: 20070319
  Serious: No
  Sender: FDA-Public Use
  Company Number: JP-ELI_LILLY_AND_COMPANY-JP200603003652

PATIENT
  Age: 42 Year
  Sex: Male

DRUGS (1)
  1. ZYPREXA [Suspect]
     Route: 048
     Dates: end: 20060301

REACTIONS (2)
  - OEDEMA PERIPHERAL [None]
  - PAIN IN EXTREMITY [None]
